FAERS Safety Report 10029094 (Version 2)
Quarter: 2015Q1

REPORT INFORMATION
  Report Type: Spontaneous
  Country: TR (occurrence: TR)
  Receive Date: 20140321
  Receipt Date: 20150301
  Transmission Date: 20150720
  Serious: Yes (Hospitalization)
  Sender: FDA-Public Use
  Company Number: ALCN2014TR001747

PATIENT
  Sex: Male

DRUGS (2)
  1. ALCAINE [Suspect]
     Active Substance: PROPARACAINE HYDROCHLORIDE
     Indication: FLATULENCE
     Dosage: 1 UNK, TID
     Route: 048
     Dates: start: 2011, end: 2011
  2. BIOGAIA [Suspect]
     Active Substance: LACTOBACILLUS REUTERI
     Indication: FLATULENCE
     Dosage: UNK UNK, NO TREATMENT

REACTIONS (2)
  - Drug dispensing error [Recovered/Resolved]
  - Incorrect route of drug administration [Recovered/Resolved]

NARRATIVE: CASE EVENT DATE: 2011
